FAERS Safety Report 5194576-7 (Version None)
Quarter: 2006Q4

REPORT INFORMATION
  Report Type: 
  Country: None (occurrence: None)
  Receive Date: 20061229
  Receipt Date: 20061218
  Transmission Date: 20070319
  Serious: Yes (Other)
  Sender: FDA-Public Use
  Company Number: US-JNJFOC-20061205080

PATIENT
  Sex: Female
  Weight: 58.97 kg

DRUGS (15)
  1. REMICADE [Suspect]
     Route: 042
  2. REMICADE [Suspect]
     Route: 042
  3. REMICADE [Suspect]
     Indication: CROHN'S DISEASE
     Dosage: THREE DOSES AND STOPPED
     Route: 042
  4. IMURAN [Concomitant]
  5. VIOXX [Concomitant]
  6. B12 [Concomitant]
     Indication: CROHN'S DISEASE
     Route: 050
  7. FOLIC ACID [Concomitant]
     Indication: CROHN'S DISEASE
  8. DIOVAN [Concomitant]
     Indication: BLOOD PRESSURE
  9. LOMOTIL [Concomitant]
     Indication: CROHN'S DISEASE
  10. LEXAPRO [Concomitant]
  11. IRON [Concomitant]
     Indication: CROHN'S DISEASE
  12. NORVASC [Concomitant]
     Indication: BLOOD PRESSURE
  13. VITAMIN K [Concomitant]
  14. MAGNESIUM OXIDE [Concomitant]
  15. ASACOL [Concomitant]

REACTIONS (4)
  - CONTUSION [None]
  - HAEMORRHAGE [None]
  - HYPERHIDROSIS [None]
  - SKIN CANCER [None]
